FAERS Safety Report 10162189 (Version 1)
Quarter: 2014Q2

REPORT INFORMATION
  Report Type: Spontaneous
  Country: IT (occurrence: None)
  Receive Date: 20140507
  Receipt Date: 20140507
  Transmission Date: 20141212
  Serious: Yes (Death, Other)
  Sender: FDA-Public Use
  Company Number: AUR-APL-2014-05199

PATIENT
  Sex: Male

DRUGS (2)
  1. LAMIVUDINE (LAMIVUDINE) [Suspect]
     Indication: PROPHYLAXIS
  2. ENTECAVIR [Suspect]
     Indication: PRODUCT USED FOR UNKNOWN INDICATION

REACTIONS (2)
  - Hepatitis B [None]
  - Acute hepatic failure [None]
